FAERS Safety Report 7381099-X (Version None)
Quarter: 2011Q1

REPORT INFORMATION
  Report Type: 
  Country: None (occurrence: None)
  Receive Date: 20110329
  Receipt Date: 20100722
  Transmission Date: 20110831
  Serious: Yes (Other)
  Sender: FDA-Public Use
  Company Number: US-AMGEN-QUU419985

PATIENT
  Age: 61 Year
  Sex: Female
  Weight: 95 kg

DRUGS (7)
  1. ISOSORBIDE MONONITRATE [Concomitant]
     Dosage: 60 MG, UNK
     Dates: start: 20100506
  2. TOPROL-XL [Concomitant]
     Dosage: 25 MG, UNK
     Dates: start: 20091001
  3. ATORVASTATIN CALCIUM [Concomitant]
     Dosage: 80 MG, UNK
  4. CLOPIDOGREL BISULFATE [Concomitant]
     Dosage: 75 MG, UNK
     Dates: start: 20091001
  5. INSULIN [Concomitant]
  6. SENSIPAR [Suspect]
     Indication: HYPERPARATHYROIDISM SECONDARY
     Dosage: 30 MG, 3 TIMES/WK
     Route: 048
     Dates: start: 20100323, end: 20100406
  7. LEVOTHYROXINE SODIUM [Concomitant]

REACTIONS (1)
  - CHEST PAIN [None]
